FAERS Safety Report 11173040 (Version 3)
Quarter: 2015Q3

REPORT INFORMATION
  Report Type: Spontaneous
  Country: US (occurrence: US)
  Receive Date: 20150608
  Receipt Date: 20150728
  Transmission Date: 20151125
  Serious: Yes (Other)
  Sender: FDA-Public Use
  Company Number: US-TEVA-566980USA

PATIENT
  Age: 62 Year
  Sex: Female
  Weight: 62 kg

DRUGS (14)
  1. BUMETANIDE. [Suspect]
     Active Substance: BUMETANIDE
     Route: 065
  2. BYSTOLIC [Suspect]
     Active Substance: NEBIVOLOL HYDROCHLORIDE
     Dates: start: 201401
  3. CADUET [Suspect]
     Active Substance: AMLODIPINE BESYLATE\ATORVASTATIN CALCIUM
     Indication: BLOOD PRESSURE ABNORMAL
     Route: 065
     Dates: start: 20141001
  4. LOSARTAN. [Suspect]
     Active Substance: LOSARTAN
     Route: 065
     Dates: start: 20141101
  5. CITALOPRAM [Suspect]
     Active Substance: CITALOPRAM HYDROBROMIDE
     Indication: BLOOD CHOLESTEROL ABNORMAL
     Route: 065
     Dates: start: 20140111, end: 20141231
  6. ATENOLOL. [Suspect]
     Active Substance: ATENOLOL
     Route: 065
  7. VALIUM [Suspect]
     Active Substance: DIAZEPAM
     Route: 065
     Dates: start: 20150330
  8. AMLODIPINE/VALSARTAN/HYDROCHLOROTHIAZIDE [Suspect]
     Active Substance: AMLODIPINE\HYDROCHLOROTHIAZIDE\VALSARTAN
     Indication: BLOOD PRESSURE ABNORMAL
     Route: 065
     Dates: start: 2013
  9. ZYPREXA [Suspect]
     Active Substance: OLANZAPINE
     Route: 065
  10. LISINOPRIL. [Suspect]
     Active Substance: LISINOPRIL
     Route: 065
  11. ALPRAZOLAM. [Suspect]
     Active Substance: ALPRAZOLAM
     Route: 065
  12. BYSTOLIC [Suspect]
     Active Substance: NEBIVOLOL HYDROCHLORIDE
     Indication: BLOOD PRESSURE ABNORMAL
     Route: 065
     Dates: start: 201306
  13. NORVASC [Suspect]
     Active Substance: AMLODIPINE BESYLATE
     Indication: BLOOD PRESSURE ABNORMAL
     Dosage: 10 MILLIGRAM DAILY;
     Route: 065
  14. DIAZEPAM. [Suspect]
     Active Substance: DIAZEPAM
     Route: 065

REACTIONS (19)
  - Cardiac disorder [Unknown]
  - Migraine [Unknown]
  - Dyspnoea [Unknown]
  - Tremor [Unknown]
  - Product substitution issue [Unknown]
  - Anxiety [Unknown]
  - Pain [Unknown]
  - Nervous system disorder [Unknown]
  - Burning sensation [Unknown]
  - Myocardial infarction [Recovered/Resolved]
  - Cerebral disorder [Unknown]
  - Hypertension [Unknown]
  - Product formulation issue [Unknown]
  - Brain injury [Recovered/Resolved]
  - Face oedema [Not Recovered/Not Resolved]
  - Diaphragmatic disorder [Unknown]
  - Blood cholesterol increased [Unknown]
  - Gait disturbance [Unknown]
  - Face injury [Unknown]

NARRATIVE: CASE EVENT DATE: 20150217
